FAERS Safety Report 16688939 (Version 2)
Quarter: 2019Q4

REPORT INFORMATION
  Report Type: Spontaneous
  Country: CZ (occurrence: CZ)
  Receive Date: 20190809
  Receipt Date: 20191230
  Transmission Date: 20200122
  Serious: Yes (Hospitalization, Other)
  Sender: FDA-Public Use
  Company Number: CZ-MYLANLABS-2019M1072714

PATIENT
  Age: 71 Year
  Sex: Female

DRUGS (5)
  1. OXAZEPAM. [Suspect]
     Active Substance: OXAZEPAM
     Indication: ADJUVANT THERAPY
     Dosage: 15 MILLIGRAM
     Route: 065
  2. LAMOTRIGINE. [Suspect]
     Active Substance: LAMOTRIGINE
     Indication: ADJUVANT THERAPY
     Dosage: 25 MILLIGRAM
     Route: 065
  3. ESCITALOPRAM [Suspect]
     Active Substance: ESCITALOPRAM OXALATE
     Indication: ADJUVANT THERAPY
     Dosage: 10 MILLIGRAM
     Route: 065
  4. OLANZAPINE. [Suspect]
     Active Substance: OLANZAPINE
     Indication: DRUG THERAPY
     Dosage: 20 MILLIGRAM, QD
     Route: 065
  5. TRAZODONE [Suspect]
     Active Substance: TRAZODONE HYDROCHLORIDE
     Indication: ADJUVANT THERAPY
     Dosage: 150 MILLIGRAM
     Route: 065

REACTIONS (3)
  - Weight increased [Unknown]
  - Sedation [Unknown]
  - Deep vein thrombosis [Unknown]
